FAERS Safety Report 11929650 (Version 1)
Quarter: 2016Q1

REPORT INFORMATION
  Report Type: Spontaneous
  Country: US (occurrence: US)
  Receive Date: 20160120
  Receipt Date: 20160120
  Transmission Date: 20160526
  Serious: Yes (Death)
  Sender: FDA-Public Use
  Company Number: US-APOTEX-2016AP005335

PATIENT
  Age: 35 Year
  Sex: Male

DRUGS (2)
  1. FENTANYL TRANSDERMAL SYSTEM [Suspect]
     Active Substance: FENTANYL
     Indication: PRODUCT USED FOR UNKNOWN INDICATION
     Route: 050
  2. ETHANOL [Suspect]
     Active Substance: ALCOHOL
     Route: 065

REACTIONS (2)
  - Cardio-respiratory arrest [Fatal]
  - Death [Fatal]
